FAERS Safety Report 10077270 (Version 1)
Quarter: 2014Q2

REPORT INFORMATION
  Report Type: Spontaneous
  Country: US (occurrence: US)
  Receive Date: 20140414
  Receipt Date: 20140414
  Transmission Date: 20141212
  Serious: No
  Sender: FDA-Public Use
  Company Number: US-BANPHARM-20131198

PATIENT
  Age: 47 Year
  Sex: Female
  Weight: 63.49 kg

DRUGS (1)
  1. NAPROXEN SODIUM 220 MG [Suspect]
     Indication: BACK PAIN
     Dosage: 1 DF,
     Route: 048
     Dates: start: 20130410, end: 20130410

REACTIONS (7)
  - Burning sensation [Recovered/Resolved]
  - Oedema peripheral [Recovered/Resolved]
  - Pruritus generalised [Recovered/Resolved]
  - Urticaria [Recovered/Resolved]
  - Erythema [Recovered/Resolved]
  - Swelling face [Recovered/Resolved]
  - Expired product administered [Unknown]
